FAERS Safety Report 8122788-9 (Version None)
Quarter: 2012Q1

REPORT INFORMATION
  Report Type: 
  Country: None (occurrence: None)
  Receive Date: 20120208
  Receipt Date: 20090430
  Transmission Date: 20120608
  Serious: No
  Sender: FDA-Public Use
  Company Number: 2009BI013669

PATIENT
  Age: 47 Year
  Sex: Female

DRUGS (1)
  1. TYSABRI [Suspect]
     Indication: MULTIPLE SCLEROSIS
     Route: 042
     Dates: start: 20080916, end: 20110312

REACTIONS (4)
  - ASTHENIA [None]
  - INFUSION SITE PAIN [None]
  - POOR VENOUS ACCESS [None]
  - WEIGHT INCREASED [None]
